FAERS Safety Report 7954562-8 (Version None)
Quarter: 2011Q4

REPORT INFORMATION
  Report Type: 
  Country: None (occurrence: None)
  Receive Date: 20111202
  Receipt Date: 20111123
  Transmission Date: 20120403
  Serious: Yes (Hospitalization)
  Sender: FDA-Public Use
  Company Number: PHHY2011DE098606

PATIENT
  Sex: Male
  Weight: 86 kg

DRUGS (13)
  1. SIMVASTATIN [Concomitant]
     Indication: HYPERCHOLESTEROLAEMIA
     Dosage: 40 MG, QD
     Route: 048
     Dates: start: 20080207
  2. RASILEZ [Suspect]
     Dosage: 150 MG/DAY
     Route: 048
     Dates: start: 20090812, end: 20101130
  3. DIGITOXIN TAB [Concomitant]
     Indication: ATRIAL FIBRILLATION
     Dosage: 0.7 MG, UNK
     Dates: start: 20080207
  4. CALCIUM CHANNEL BLOCKERS [Concomitant]
     Dosage: UNK
  5. ALDACTONE [Concomitant]
     Indication: PROTEINURIA
     Dosage: 25 MG
     Route: 048
     Dates: start: 20090812
  6. ALPHA RECEPTOR BLOCKER [Concomitant]
     Dates: start: 20090721
  7. METOPROLOL TARTRATE [Concomitant]
     Indication: ATRIAL FIBRILLATION
     Dosage: 100 MG, QD
     Dates: start: 20100616
  8. FUROSEMIDE [Concomitant]
     Indication: HYPERTENSION
     Dosage: 40 MG, QD
     Route: 048
     Dates: start: 20080529
  9. PLETAL [Concomitant]
     Indication: PERIPHERAL ARTERIAL OCCLUSIVE DISEASE
     Dosage: 100 MG, QD
     Route: 048
     Dates: start: 20080904
  10. GLYBURIDE [Concomitant]
     Indication: DIABETES MELLITUS
     Dosage: 3.5 MG, QD
     Dates: start: 20080529
  11. RASILEZ [Suspect]
     Indication: HYPERTENSION
     Dosage: 300 MG/DAY
     Route: 048
     Dates: start: 20080903, end: 20090812
  12. MICARDIS [Concomitant]
     Indication: HYPERTENSION
     Dosage: 80 MG, QD
     Route: 048
     Dates: start: 20080207
  13. MARCUMAR [Concomitant]
     Indication: ATRIAL FIBRILLATION
     Dosage: 1.5 MG, QD
     Dates: start: 20080207

REACTIONS (8)
  - HEART RATE INCREASED [None]
  - TACHYARRHYTHMIA [None]
  - BLOOD CREATININE INCREASED [None]
  - BLOOD SODIUM INCREASED [None]
  - CREATININE URINE INCREASED [None]
  - BLOOD TRIGLYCERIDES INCREASED [None]
  - HIGH DENSITY LIPOPROTEIN INCREASED [None]
  - BLOOD PRESSURE INCREASED [None]
